FAERS Safety Report 10110765 (Version 2)
Quarter: 2014Q2

REPORT INFORMATION
  Report Type: Spontaneous
  Country: US (occurrence: US)
  Receive Date: 20140425
  Receipt Date: 20140521
  Transmission Date: 20141212
  Serious: Yes (Hospitalization)
  Sender: FDA-Public Use
  Company Number: US-TEVA-476959USA

PATIENT
  Age: 67 Year
  Sex: Male
  Weight: 119 kg

DRUGS (3)
  1. TREANDA [Suspect]
     Indication: NODAL MARGINAL ZONE B-CELL LYMPHOMA
     Dosage: 210 MG, CYCLE DAYS TWO OR THREE
     Dates: start: 20140318
  2. TREANDA [Suspect]
     Dosage: UNK,
     Route: 065
     Dates: start: 20140414
  3. RITUXAN [Suspect]
     Indication: PRODUCT USED FOR UNKNOWN INDICATION
     Dosage: UNK, UNKNOWN FREQ.
     Route: 065

REACTIONS (5)
  - Chills [Recovered/Resolved]
  - Serum sickness [Recovered/Resolved]
  - Anaemia [Not Recovered/Not Resolved]
  - Platelet count decreased [Not Recovered/Not Resolved]
  - Blood glucose increased [Not Recovered/Not Resolved]
